FAERS Safety Report 5746946-3 (Version None)
Quarter: 2008Q2

REPORT INFORMATION
  Report Type: 
  Country: None (occurrence: None)
  Receive Date: 20080522
  Receipt Date: 20080512
  Transmission Date: 20081010
  Serious: Yes (Hospitalization)
  Sender: FDA-Public Use
  Company Number: JP-GENENTECH-252020

PATIENT
  Sex: Female

DRUGS (7)
  1. BEVACIZUMAB [Suspect]
     Indication: COLON CANCER RECURRENT
     Dosage: 5 MG/KG, UNK
     Route: 041
     Dates: start: 20070724
  2. FLUOROURACIL [Suspect]
     Indication: COLON CANCER RECURRENT
     Dosage: UNK, UNK
     Route: 040
     Dates: start: 20070724
  3. FLUOROURACIL [Suspect]
     Route: 041
  4. ISOVORIN [Suspect]
     Indication: COLON CANCER RECURRENT
     Dosage: UNK, UNK
     Route: 041
     Dates: start: 20070724
  5. IRINOTECAN HCL [Suspect]
     Indication: COLON CANCER RECURRENT
     Dosage: UNK, UNK
     Route: 041
     Dates: start: 20070724
  6. OXYCONTIN [Concomitant]
     Indication: DRUG USE FOR UNKNOWN INDICATION
     Dosage: UNK, UNK
     Dates: start: 20070507
  7. NORVASC [Concomitant]
     Indication: DRUG USE FOR UNKNOWN INDICATION
     Dosage: UNK, UNK
     Dates: start: 20050906, end: 20080207

REACTIONS (3)
  - DIARRHOEA [None]
  - RENAL IMPAIRMENT [None]
  - VOMITING [None]
